FAERS Safety Report 19744945 (Version 1)
Quarter: 2021Q3

REPORT INFORMATION
  Report Type: Spontaneous
  Country: CA (occurrence: CA)
  Receive Date: 20210825
  Receipt Date: 20210825
  Transmission Date: 20211014
  Serious: Yes (Hospitalization)
  Sender: FDA-Public Use
  Company Number: CA-PFIZER INC-202101065133

PATIENT
  Age: 56 Year
  Sex: Male

DRUGS (7)
  1. CELEBREX [Suspect]
     Active Substance: CELECOXIB
     Dosage: 200 MG, 2 EVERY 1 DAYS
     Route: 048
  2. ASPIRIN [ACETYLSALICYLIC ACID] [Suspect]
     Active Substance: ASPIRIN
     Dosage: 80 MG
     Route: 048
  3. TYLENOL [Concomitant]
     Active Substance: ACETAMINOPHEN
  4. PANTOLOC [Concomitant]
     Active Substance: PANTOPRAZOLE SODIUM
  5. PERINDOPRIL [Concomitant]
     Active Substance: PERINDOPRIL
  6. NORVASC [Concomitant]
     Active Substance: AMLODIPINE BESYLATE
  7. DILAUDID [Concomitant]
     Active Substance: HYDROMORPHONE HYDROCHLORIDE

REACTIONS (3)
  - Melaena [Unknown]
  - Haemoglobin decreased [Unknown]
  - Ulcerative duodenitis [Unknown]
